FAERS Safety Report 10491135 (Version 1)
Quarter: 2014Q4

REPORT INFORMATION
  Report Type: Spontaneous
  Country: US (occurrence: US)
  Receive Date: 20141002
  Receipt Date: 20141002
  Transmission Date: 20150528
  Serious: No
  Sender: FDA-Public Use
  Company Number: US-GLAXOSMITHKLINE-A1048044A

PATIENT
  Age: 8 Year
  Sex: Male
  Weight: 28.8 kg

DRUGS (2)
  1. ADVAIR HFA [Suspect]
     Active Substance: FLUTICASONE PROPIONATE\SALMETEROL XINAFOATE
     Indication: ASTHMA
     Dosage: 1PUFF TWICE PER DAY
     Route: 055
     Dates: start: 20130901, end: 201310
  2. ALBUTEROL. [Concomitant]
     Active Substance: ALBUTEROL

REACTIONS (8)
  - Wheezing [Unknown]
  - Nasopharyngitis [Unknown]
  - Nasopharyngitis [Recovering/Resolving]
  - Product quality issue [Unknown]
  - Sputum increased [Unknown]
  - Cough [Unknown]
  - Inhalation therapy [Unknown]
  - Asthma [Unknown]

NARRATIVE: CASE EVENT DATE: 20130920
